FAERS Safety Report 14155361 (Version 1)
Quarter: 2017Q4

REPORT INFORMATION
  Report Type: Spontaneous
  Country: ZA (occurrence: ZA)
  Receive Date: 20171103
  Receipt Date: 20171103
  Transmission Date: 20180321
  Serious: Yes (Hospitalization, Other)
  Sender: FDA-Public Use
  Company Number: ZA-AUROBINDO-AUR-APL-2017-42719

PATIENT
  Age: 39 Year
  Sex: Male

DRUGS (3)
  1. ABACAVIR 300 MG [Suspect]
     Active Substance: ABACAVIR
     Indication: HIV INFECTION
     Dosage: 300 MG, TWO TIMES A DAY
     Route: 065
  2. EFAVIRENZ 600MG [Suspect]
     Active Substance: EFAVIRENZ
     Indication: HIV INFECTION
     Dosage: 600 MG, ONCE A DAY
     Route: 065
  3. LAMIVUDINE. [Suspect]
     Active Substance: LAMIVUDINE
     Indication: HIV INFECTION
     Dosage: 300 MG, TWO TIMES A DAY
     Route: 065

REACTIONS (8)
  - Dysphonia [Recovered/Resolved]
  - Papule [Recovered/Resolved]
  - Oropharyngeal pain [Recovered/Resolved]
  - Skin plaque [Recovered/Resolved]
  - Histoplasmosis disseminated [Recovered/Resolved]
  - Skin lesion [Recovered/Resolved]
  - Immune reconstitution inflammatory syndrome [Recovered/Resolved]
  - Skin mass [Recovered/Resolved]
